FAERS Safety Report 7785530-7 (Version None)
Quarter: 2011Q3

REPORT INFORMATION
  Report Type: 
  Country: None (occurrence: None)
  Receive Date: 20110929
  Receipt Date: 20110919
  Transmission Date: 20111222
  Serious: Yes (Hospitalization)
  Sender: FDA-Public Use
  Company Number: CA-JNJFOC-20110909160

PATIENT
  Sex: Male
  Weight: 84 kg

DRUGS (7)
  1. POTASSIUM CHLORIDE [Concomitant]
     Route: 065
  2. CORTISONE ACETATE [Concomitant]
     Dosage: DECREASING DOSES
     Route: 065
  3. PANTOPRAZOLE SODIUM [Concomitant]
     Dosage: 4 WEEKS
     Route: 065
  4. ACCUPRIL [Concomitant]
     Route: 065
  5. ACETAMINOPHEN [Concomitant]
     Route: 048
  6. METOCLOPRAMIDE [Concomitant]
     Route: 065
  7. REMICADE [Suspect]
     Indication: RHEUMATOID ARTHRITIS
     Dosage: DOSE STRENGTH: 100MG/VIAL
     Route: 042
     Dates: start: 20100602

REACTIONS (4)
  - ANAEMIA [None]
  - ASTHENIA [None]
  - DEHYDRATION [None]
  - GASTROINTESTINAL TRACT IRRITATION [None]
